FAERS Safety Report 22591137 (Version 1)
Quarter: 2023Q2

REPORT INFORMATION
  Report Type: Spontaneous
  Country: US (occurrence: US)
  Receive Date: 20230612
  Receipt Date: 20230612
  Transmission Date: 20230721
  Serious: No
  Sender: FDA-Public Use
  Company Number: US-ABBVIE-5282624

PATIENT
  Age: 48 Year
  Sex: Female

DRUGS (1)
  1. LILETTA [Suspect]
     Active Substance: LEVONORGESTREL
     Indication: Product used for unknown indication
     Dosage: 52 MG
     Route: 015
     Dates: start: 20230526, end: 20230603

REACTIONS (2)
  - Haemorrhage [Unknown]
  - Device expulsion [Unknown]

NARRATIVE: CASE EVENT DATE: 20230603
